FAERS Safety Report 14161792 (Version 1)
Quarter: 2017Q4

REPORT INFORMATION
  Report Type: Spontaneous
  Country: US (occurrence: None)
  Receive Date: 20171104
  Receipt Date: 20171104
  Transmission Date: 20180321
  Serious: Yes (Hospitalization)
  Sender: FDA-Public Use
  Company Number: None

PATIENT
  Age: 62 Year
  Sex: Male
  Weight: 119.7 kg

DRUGS (1)
  1. CISPLATIN. [Suspect]
     Active Substance: CISPLATIN
     Dates: end: 20170913

REACTIONS (5)
  - Weight decreased [None]
  - Hypophagia [None]
  - Nausea [None]
  - Vomiting [None]
  - Failure to thrive [None]

NARRATIVE: CASE EVENT DATE: 20171101
